FAERS Safety Report 5570078-0 (Version None)
Quarter: 2007Q4

REPORT INFORMATION
  Report Type: 
  Country: None (occurrence: None)
  Receive Date: 20071218
  Receipt Date: 20071204
  Transmission Date: 20080405
  Serious: Yes (Congenital Anomaly)
  Sender: FDA-Public Use
  Company Number: 2007S1000301

PATIENT
  Sex: Male

DRUGS (1)
  1. ACITRETIN [Suspect]
     Dosage: TRPL

REACTIONS (3)
  - DRUG EXPOSURE DURING PREGNANCY [None]
  - PREGNANCY OF PARTNER [None]
  - TOOTH HYPOPLASIA [None]
